FAERS Safety Report 7097890-3 (Version None)
Quarter: 2010Q4

REPORT INFORMATION
  Report Type: 
  Country: None (occurrence: None)
  Receive Date: 20101112
  Receipt Date: 20101105
  Transmission Date: 20110411
  Serious: Yes (Hospitalization)
  Sender: FDA-Public Use
  Company Number: NO-B.I. PHARMACEUTICALS,INC./RIDGEFIELD-2010-SW-00342NO

PATIENT
  Sex: Male

DRUGS (3)
  1. PERSANTIN [Suspect]
     Indication: CEREBROVASCULAR ACCIDENT
     Route: 048
  2. BREXIDOL [Suspect]
     Indication: MUSCULOSKELETAL PAIN
     Route: 048
  3. ALBYL-E [Suspect]
     Indication: CEREBROVASCULAR ACCIDENT
     Route: 048

REACTIONS (2)
  - ANAEMIA [None]
  - GASTROINTESTINAL HAEMORRHAGE [None]
